FAERS Safety Report 9206386 (Version 1)
Quarter: 2013Q2

REPORT INFORMATION
  Report Type: Spontaneous
  Country: US (occurrence: None)
  Receive Date: 20130401
  Receipt Date: 20130401
  Transmission Date: 20140414
  Serious: Yes (Other)
  Sender: FDA-Public Use
  Company Number: 2013-05338

PATIENT
  Age: 49 Year
  Sex: Female

DRUGS (6)
  1. VANCOMYCIN HYDROCHLORIDE [Suspect]
  2. FLUOXETINE HYDROCHLORIDE (FLUOXETINE HYDROCHLORIDE) [Suspect]
  3. HYDROCODONE (HYDROCODONE) [Suspect]
  4. TICARCILLIN/CLAVULANATE POTASSIUM [Suspect]
  5. CEFAZOLIN [Concomitant]
  6. FLUCONAZOLE [Concomitant]

REACTIONS (4)
  - Linear IgA disease [None]
  - Oral candidiasis [None]
  - Rash pruritic [None]
  - Rash vesicular [None]
